FAERS Safety Report 6298623-0 (Version None)
Quarter: 2009Q3

REPORT INFORMATION
  Report Type: 
  Country: None (occurrence: None)
  Receive Date: 20090804
  Receipt Date: 20090722
  Transmission Date: 20100115
  Serious: Yes (Hospitalization)
  Sender: FDA-Public Use
  Company Number: 238216K09USA

PATIENT
  Age: 53 Year
  Sex: Female

DRUGS (3)
  1. REBIF [Suspect]
     Indication: MULTIPLE SCLEROSIS
     Dosage: 44 MCG, 3 IN 1 WEEKS, SUBCUTANEOUS
     Route: 058
     Dates: start: 20071103
  2. PROZAC [Concomitant]
  3. UNSPECIFIED INTRAVENOUS STEROIDS (CORTICOSTEROIDS) [Concomitant]

REACTIONS (7)
  - ARTHRITIS [None]
  - EYE DISORDER [None]
  - FALL [None]
  - INTERVERTEBRAL DISC DEGENERATION [None]
  - LUMBAR VERTEBRAL FRACTURE [None]
  - OSTEOPOROSIS [None]
  - SCIATICA [None]
